FAERS Safety Report 24429917 (Version 3)
Quarter: 2024Q4

REPORT INFORMATION
  Report Type: Report from Study
  Country: CA (occurrence: CA)
  Receive Date: 20241012
  Receipt Date: 20241101
  Transmission Date: 20250115
  Serious: Yes (Other)
  Sender: JOHNSON AND JOHNSON
  Company Number: CA-JNJFOC-20241020079

PATIENT
  Age: 29 Year
  Sex: Male

DRUGS (1)
  1. SIMPONI [Suspect]
     Active Substance: GOLIMUMAB
     Indication: Colitis ulcerative
     Route: 058
     Dates: start: 20170630

REACTIONS (3)
  - Lyme disease [Not Recovered/Not Resolved]
  - Colitis ulcerative [Unknown]
  - Arthritis [Unknown]

NARRATIVE: CASE EVENT DATE: 20241003
